FAERS Safety Report 13963378 (Version 1)
Quarter: 2017Q3

REPORT INFORMATION
  Report Type: Spontaneous
  Country: RO (occurrence: RO)
  Receive Date: 20170913
  Receipt Date: 20170913
  Transmission Date: 20171128
  Serious: Yes (Life-Threatening)
  Sender: FDA-Public Use
  Company Number: RO-GLAXOSMITHKLINE-RO2017140633

PATIENT
  Sex: Female
  Weight: 57 kg

DRUGS (2)
  1. VENTOLIN [Suspect]
     Active Substance: ALBUTEROL SULFATE
     Indication: ASTHMA
     Dosage: 100 MG IN ASTHMA CRISIS WITH PAUSE OF 15 MINUTES AND REPEAT IF IT DOES NOT WORK
     Route: 055
  2. VENTOLIN CFC FREE [Suspect]
     Active Substance: ALBUTEROL SULFATE
     Indication: ASTHMA
     Dosage: 100 MG IN ASTHMA CRISIS WITH PAUSE OF 15 MINUTES AND REPEAT IF IT DOES NOT WORK
     Route: 055

REACTIONS (1)
  - Drug ineffective [Recovered/Resolved]
